FAERS Safety Report 6539323-9 (Version None)
Quarter: 2010Q1

REPORT INFORMATION
  Report Type: 
  Country: None (occurrence: None)
  Receive Date: 20100111
  Receipt Date: 20090930
  Transmission Date: 20100710
  Serious: Yes (Other)
  Sender: FDA-Public Use
  Company Number: 2009157279

PATIENT
  Age: 65 Year
  Sex: Female
  Weight: 56.7 kg

DRUGS (7)
  1. ATGAM [Suspect]
     Indication: APLASTIC ANAEMIA
     Dosage: 2250 MG, INTRAVENOUS
     Route: 042
     Dates: start: 20090112, end: 20090114
  2. DIFLUCAN [Concomitant]
  3. VALTREX [Concomitant]
  4. ZOLOFT [Concomitant]
  5. CLARITIN [Concomitant]
  6. PRILOSEC [Concomitant]
  7. CYCLOSPORINE [Concomitant]

REACTIONS (1)
  - HEPATOTOXICITY [None]
